FAERS Safety Report 11261915 (Version 1)
Quarter: 2015Q3

REPORT INFORMATION
  Report Type: Spontaneous
  Country: US (occurrence: US)
  Receive Date: 20150710
  Receipt Date: 20150710
  Transmission Date: 20151125
  Serious: Yes (Other)
  Sender: FDA-Public Use
  Company Number: US-PURDUE PHARMA-USA-2015-0122245

PATIENT
  Age: 29 Year
  Sex: Female

DRUGS (2)
  1. BUTRANS [Suspect]
     Active Substance: BUPRENORPHINE
     Indication: ANALGESIC THERAPY
  2. BUTRANS [Suspect]
     Active Substance: BUPRENORPHINE
     Indication: INTERVERTEBRAL DISC PROTRUSION
     Dosage: 10 MCG/HR, WEEKLY
     Route: 062
     Dates: start: 20150321, end: 20150322

REACTIONS (7)
  - Nausea [Recovered/Resolved]
  - Gastrointestinal infection [Recovered/Resolved]
  - Hyperhidrosis [Recovered/Resolved]
  - Asthenia [Recovered/Resolved]
  - Dizziness [Recovered/Resolved]
  - Communication disorder [Recovered/Resolved]
  - Mental impairment [Recovered/Resolved]

NARRATIVE: CASE EVENT DATE: 20150322
